FAERS Safety Report 4297390-X (Version None)
Quarter: 2004Q1

REPORT INFORMATION
  Report Type: 
  Country: None (occurrence: None)
  Receive Date: 20040213
  Receipt Date: 20040203
  Transmission Date: 20041129
  Serious: Yes (Other)
  Sender: FDA-Public Use
  Company Number: HQWYE859406FEB04

PATIENT
  Age: 53 Year
  Sex: Male

DRUGS (4)
  1. SIROLIMUS (SIROLIMUS, UNSPEC) [Suspect]
     Indication: RENAL TRANSPLANT
     Dosage: 4 TO 5 MG DAILY
     Dates: start: 20020101, end: 20030301
  2. LABETALOL HCL [Concomitant]
  3. NITRENDIPINE (NITRENDIPINE) [Concomitant]
  4. CORTICOSTEROIDS (CORTICOSTEROIDS) [Concomitant]

REACTIONS (17)
  - ALOPECIA [None]
  - BLOOD CHOLESTEROL INCREASED [None]
  - BLOOD CREATINE PHOSPHOKINASE INCREASED [None]
  - BLOOD LACTATE DEHYDROGENASE INCREASED [None]
  - BLOOD PRESSURE INCREASED [None]
  - BLOOD TRIGLYCERIDES INCREASED [None]
  - DRY SKIN [None]
  - EXANTHEM [None]
  - EXERCISE CAPACITY DECREASED [None]
  - FATIGUE [None]
  - MYOPATHY [None]
  - MYOPIA [None]
  - NIGHT CRAMPS [None]
  - PRURITUS [None]
  - SLEEP DISORDER [None]
  - STOMATITIS [None]
  - TREMOR [None]
